FAERS Safety Report 9422641 (Version 2)
Quarter: 2013Q3

REPORT INFORMATION
  Report Type: Spontaneous
  Country: DE (occurrence: DE)
  Receive Date: 20130726
  Receipt Date: 20130816
  Transmission Date: 20140515
  Serious: Yes (Other)
  Sender: FDA-Public Use
  Company Number: DE-ELI_LILLY_AND_COMPANY-DE201307004637

PATIENT
  Sex: Male

DRUGS (3)
  1. ZYPADHERA [Suspect]
     Indication: SCHIZOPHRENIA
     Dosage: 300 MG, 2/M
     Route: 030
     Dates: start: 20100902
  2. LYOGEN [Concomitant]
     Dosage: 25 MG, OTHER
     Dates: start: 20101217
  3. LYOGEN [Concomitant]
     Dosage: 25 MG, OTHER
     Dates: start: 201303

REACTIONS (9)
  - Sedation [Unknown]
  - Disorientation [Unknown]
  - Dizziness [Recovered/Resolved]
  - Dysarthria [Recovered/Resolved]
  - Depressed level of consciousness [Recovered/Resolved]
  - Heart rate increased [Recovered/Resolved]
  - Blood pressure decreased [Recovered/Resolved]
  - Akathisia [Recovered/Resolved]
  - Malaise [Unknown]
